FAERS Safety Report 25487117 (Version 1)
Quarter: 2025Q2

REPORT INFORMATION
  Report Type: Spontaneous
  Country: ES (occurrence: ES)
  Receive Date: 20250627
  Receipt Date: 20250627
  Transmission Date: 20250717
  Serious: Yes (Death, Other)
  Sender: AMICUS THERAPEUTICS
  Company Number: ES-AMICUS THERAPEUTICS, INC.-AMI_4121

PATIENT
  Age: 8 Decade
  Sex: Female

DRUGS (1)
  1. GALAFOLD [Suspect]
     Active Substance: MIGALASTAT HYDROCHLORIDE
     Indication: Fabry^s disease
     Route: 048
     Dates: start: 201801, end: 2025

REACTIONS (4)
  - Death [Fatal]
  - General physical health deterioration [Unknown]
  - Mobility decreased [Unknown]
  - Depression [Unknown]

NARRATIVE: CASE EVENT DATE: 20250101
